FAERS Safety Report 4653438-1 (Version None)
Quarter: 2005Q2

REPORT INFORMATION
  Report Type: 
  Country: None (occurrence: None)
  Receive Date: 20050505
  Receipt Date: 20050419
  Transmission Date: 20051028
  Serious: Yes (Other)
  Sender: FDA-Public Use
  Company Number: PHEH2005US04514

PATIENT
  Age: 87 Year
  Sex: Male

DRUGS (1)
  1. MIOCHOL-E [Suspect]
     Dosage: UNK, ONCE/SINGLE
     Route: 031
     Dates: start: 20050419, end: 20050419

REACTIONS (1)
  - IRIS HAEMORRHAGE [None]
